FAERS Safety Report 9459284 (Version 1)
Quarter: 2013Q3

REPORT INFORMATION
  Report Type: Spontaneous
  Country: GB (occurrence: GB)
  Receive Date: 20130815
  Receipt Date: 20130815
  Transmission Date: 20140515
  Serious: Yes (Death, Congenital Anomaly)
  Sender: FDA-Public Use
  Company Number: GB-MYLANLABS-2013S1017293

PATIENT
  Sex: 0

DRUGS (1)
  1. CITALOPRAM [Suspect]
     Route: 064

REACTIONS (2)
  - Exposure during pregnancy [Unknown]
  - Pulmonary artery stenosis congenital [Fatal]
